FAERS Safety Report 18120497 (Version 1)
Quarter: 2020Q3

REPORT INFORMATION
  Report Type: Spontaneous
  Country: US (occurrence: US)
  Receive Date: 20200806
  Receipt Date: 20200806
  Transmission Date: 20201103
  Serious: Yes (Hospitalization)
  Sender: FDA-Public Use
  Company Number: US-ABBVIE-20K-163-3464411-00

PATIENT
  Sex: Female

DRUGS (2)
  1. RISPERIDONE. [Suspect]
     Active Substance: RISPERIDONE
     Indication: DEPRESSION
     Route: 065
  2. DIVALPROEX SODIUM. [Suspect]
     Active Substance: DIVALPROEX SODIUM
     Indication: DEPRESSION
     Route: 065

REACTIONS (8)
  - Urticaria [Unknown]
  - Adverse drug reaction [Unknown]
  - Muscle swelling [Unknown]
  - Asthenia [Unknown]
  - Dysarthria [Unknown]
  - Unevaluable event [Unknown]
  - Hospitalisation [Recovered/Resolved]
  - Respiratory disorder [Unknown]
